FAERS Safety Report 19762834 (Version 4)
Quarter: 2022Q2

REPORT INFORMATION
  Report Type: Spontaneous
  Country: US (occurrence: None)
  Receive Date: 20210830
  Receipt Date: 20220422
  Transmission Date: 20220720
  Serious: Yes (Other)
  Sender: FDA-Public Use
  Company Number: 2019SE11794

PATIENT
  Age: 20763 Day
  Sex: Female
  Weight: 49.4 kg

DRUGS (47)
  1. NEXIUM [Suspect]
     Active Substance: ESOMEPRAZOLE MAGNESIUM
     Indication: Gastrooesophageal reflux disease
     Route: 048
     Dates: start: 1990, end: 2021
  2. NEXIUM [Suspect]
     Active Substance: ESOMEPRAZOLE MAGNESIUM
     Indication: Gastrooesophageal reflux disease
     Route: 048
     Dates: start: 2001, end: 2021
  3. NEXIUM 24HR [Suspect]
     Active Substance: ESOMEPRAZOLE MAGNESIUM
     Indication: Gastrooesophageal reflux disease
     Route: 048
     Dates: start: 1990, end: 2021
  4. NEXIUM 24HR [Suspect]
     Active Substance: ESOMEPRAZOLE MAGNESIUM
     Indication: Gastrooesophageal reflux disease
     Route: 048
     Dates: start: 2014, end: 2021
  5. PRILOSEC [Suspect]
     Active Substance: OMEPRAZOLE MAGNESIUM
     Indication: Gastrooesophageal reflux disease
     Route: 048
     Dates: start: 1990, end: 2021
  6. PRILOSEC [Suspect]
     Active Substance: OMEPRAZOLE MAGNESIUM
     Indication: Gastrooesophageal reflux disease
     Route: 048
     Dates: start: 1990, end: 2021
  7. PRILOSEC [Suspect]
     Active Substance: OMEPRAZOLE MAGNESIUM
     Indication: Gastrooesophageal reflux disease
     Dosage: GENERIC
     Route: 065
     Dates: start: 2001, end: 2021
  8. PRILOSEC OTC [Suspect]
     Active Substance: OMEPRAZOLE MAGNESIUM
     Indication: Gastrooesophageal reflux disease
     Route: 048
     Dates: start: 2003, end: 2021
  9. PREVACID [Suspect]
     Active Substance: LANSOPRAZOLE
     Indication: Gastrooesophageal reflux disease
     Route: 065
     Dates: start: 1990, end: 2021
  10. PREVACID [Suspect]
     Active Substance: LANSOPRAZOLE
     Indication: Gastrooesophageal reflux disease
     Route: 065
     Dates: start: 1995, end: 2021
  11. OMEPRAZOLE\SODIUM BICARBONATE [Suspect]
     Active Substance: OMEPRAZOLE\SODIUM BICARBONATE
     Indication: Gastrooesophageal reflux disease
     Route: 065
     Dates: start: 2016
  12. EPINEPHRINE [Concomitant]
     Active Substance: EPINEPHRINE
  13. LOSARTAN [Concomitant]
     Active Substance: LOSARTAN
     Indication: Hypertension
  14. BACLOFEN [Concomitant]
     Active Substance: BACLOFEN
  15. CLOPIDOGREL [Concomitant]
     Active Substance: CLOPIDOGREL BISULFATE
  16. SUMATRIPTAN [Concomitant]
     Active Substance: SUMATRIPTAN
  17. GABAPENTIN [Concomitant]
     Active Substance: GABAPENTIN
  18. ADVAIR HFA [Concomitant]
     Active Substance: FLUTICASONE PROPIONATE\SALMETEROL XINAFOATE
  19. TRAZODONE [Concomitant]
     Active Substance: TRAZODONE HYDROCHLORIDE
  20. PAROXETINE [Concomitant]
     Active Substance: PAROXETINE
  21. BUSPIRONE [Concomitant]
     Active Substance: BUSPIRONE HYDROCHLORIDE
  22. ATORVASTATIN [Concomitant]
     Active Substance: ATORVASTATIN
     Indication: Blood cholesterol
  23. OXYBUTYNIN [Concomitant]
     Active Substance: OXYBUTYNIN
  24. METOPROLOL [Concomitant]
     Active Substance: METOPROLOL
  25. ROPINIROLE [Concomitant]
     Active Substance: ROPINIROLE
  26. FERROUS SULFATE [Concomitant]
     Active Substance: FERROUS SULFATE
  27. FLUTICASONE [Concomitant]
     Active Substance: FLUTICASONE
     Indication: Infection
  28. DOXYCYCLINE [Concomitant]
     Active Substance: DOXYCYCLINE
  29. PREDNISONE [Concomitant]
     Active Substance: PREDNISONE
  30. HYDROXYZINE [Concomitant]
     Active Substance: HYDROXYZINE HYDROCHLORIDE
  31. THEOBROMA CACAO/GLUTAMIC ACID/CRATAEGUS LAEVIGATA FRUIT/TRAZODONE HYDR [Concomitant]
  32. RANITIDINE [Concomitant]
     Active Substance: RANITIDINE
  33. VENTOLIN [Concomitant]
     Active Substance: ALBUTEROL SULFATE
  34. LOVASTATIN [Concomitant]
     Active Substance: LOVASTATIN
     Indication: Blood cholesterol
  35. NAPROXEN [Concomitant]
     Active Substance: NAPROXEN
     Indication: Pain
  36. AMITRIPTYLINE [Concomitant]
     Active Substance: AMITRIPTYLINE
     Indication: Anxiety
  37. AMITRIPTYLINE [Concomitant]
     Active Substance: AMITRIPTYLINE
     Indication: Depression
  38. ASPIRIN [Concomitant]
     Active Substance: ASPIRIN
     Indication: Pain
     Dosage: ON OCASSION
  39. CIMETIDINE [Concomitant]
     Active Substance: CIMETIDINE
  40. FAMOTIDINE [Concomitant]
     Active Substance: FAMOTIDINE
  41. GENERIC CIMETIDINE [Concomitant]
  42. GENERIC FAMOTIDINE [Concomitant]
  43. ZANTAC 150 (RANITIDINE HYDROCHLORIDE) [Concomitant]
     Active Substance: RANITIDINE HYDROCHLORIDE
  44. ZANTAC [Concomitant]
     Active Substance: RANITIDINE HYDROCHLORIDE
  45. TAGAMET [Concomitant]
     Active Substance: CIMETIDINE
  46. GENERIC RANITIDINE [Concomitant]
  47. PEPTO-BISMOL [Concomitant]
     Active Substance: BISMUTH SUBSALICYLATE
     Dosage: THREE TIMES DAILY

REACTIONS (3)
  - Chronic kidney disease [Not Recovered/Not Resolved]
  - Acute kidney injury [Unknown]
  - Gastrooesophageal reflux disease [Not Recovered/Not Resolved]

NARRATIVE: CASE EVENT DATE: 20150925
